FAERS Safety Report 11715136 (Version 3)
Quarter: 2016Q1

REPORT INFORMATION
  Report Type: Report from Study
  Country: DE (occurrence: DE)
  Receive Date: 20151109
  Receipt Date: 20160107
  Transmission Date: 20160525
  Serious: Yes (Other)
  Sender: FDA-Public Use
  Company Number: DE-BAXALTA-2015BLT002247

PATIENT
  Age: 3 Year
  Sex: Male
  Weight: 13.5 kg

DRUGS (5)
  1. ADVATE [Suspect]
     Active Substance: ANTIHEMOPHILIC FACTOR, HUMAN RECOMBINANT
     Dosage: 1000 IU (80 IU/KG), 1X A DAY
     Route: 065
     Dates: start: 20151014
  2. ADVATE [Suspect]
     Active Substance: ANTIHEMOPHILIC FACTOR, HUMAN RECOMBINANT
     Dosage: 500 IU, ADMINISTERED 17 TIMES  TOTAL
     Route: 065
     Dates: start: 20150731, end: 20150907
  3. ADVATE [Suspect]
     Active Substance: ANTIHEMOPHILIC FACTOR, HUMAN RECOMBINANT
     Indication: HAEMORRHAGE PROPHYLAXIS
     Dosage: 500 IU,  ADMINISTERED 29 TIMES TOTAL
     Route: 065
     Dates: start: 20150527, end: 20150729
  4. ADVATE [Suspect]
     Active Substance: ANTIHEMOPHILIC FACTOR, HUMAN RECOMBINANT
     Indication: FACTOR VIII DEFICIENCY
     Dosage: 500 IU, 3X A WEEK
     Route: 065
     Dates: start: 20150513, end: 20150525
  5. ADVATE [Suspect]
     Active Substance: ANTIHEMOPHILIC FACTOR, HUMAN RECOMBINANT
     Dosage: 500 IU, ADMINISTERED 15 TIMES TOTAL
     Route: 065
     Dates: start: 20150909, end: 20151012

REACTIONS (2)
  - Factor VIII inhibition [Recovering/Resolving]
  - Haemarthrosis [Unknown]

NARRATIVE: CASE EVENT DATE: 20151014
